FAERS Safety Report 4422084-7 (Version None)
Quarter: 2004Q3

REPORT INFORMATION
  Report Type: 
  Country: None (occurrence: None)
  Receive Date: 20040809
  Receipt Date: 20040809
  Transmission Date: 20050211
  Serious: Yes (Other)
  Sender: FDA-Public Use
  Company Number: None

PATIENT
  Age: 51 Year
  Sex: Female

DRUGS (1)
  1. RIMSO-50 [Suspect]
     Indication: CYSTITIS INTERSTITIAL

REACTIONS (5)
  - ABDOMINAL PAIN LOWER [None]
  - CHILLS [None]
  - PYREXIA [None]
  - TENDERNESS [None]
  - URINARY RETENTION [None]
